FAERS Safety Report 10071580 (Version 1)
Quarter: 2014Q2

REPORT INFORMATION
  Report Type: Spontaneous
  Country: DE (occurrence: DE)
  Receive Date: 20140410
  Receipt Date: 20140410
  Transmission Date: 20141212
  Serious: Yes (Death, Hospitalization)
  Sender: FDA-Public Use
  Company Number: PHHY2014DE043132

PATIENT
  Age: 25 Year
  Sex: Male

DRUGS (5)
  1. CICLOSPORIN [Suspect]
     Dosage: 35 MG, BID
  2. PREDNISOLONE [Concomitant]
     Dosage: 7.5 MG, UNK
  3. VALSARTAN [Concomitant]
     Dosage: 160 MG, BID
  4. DARBEPOETIN ALFA [Concomitant]
     Dosage: 40 UG, EVERY 2 WEEKS
  5. ACETYLSALICYLIC ACID [Concomitant]

REACTIONS (18)
  - Cerebral infarction [Fatal]
  - Bone marrow failure [Unknown]
  - Thrombotic microangiopathy [Unknown]
  - Listless [Unknown]
  - Mutism [Unknown]
  - Central nervous system lesion [Unknown]
  - Hemiparesis [Unknown]
  - Blood pressure increased [Unknown]
  - Limb discomfort [Unknown]
  - Leukopenia [Unknown]
  - Thrombocytopenia [Unknown]
  - Haemoglobin decreased [Unknown]
  - Asthenia [Unknown]
  - Fatigue [Unknown]
  - Memory impairment [Unknown]
  - Blindness [Unknown]
  - Loss of consciousness [Unknown]
  - Immunosuppressant drug level decreased [Unknown]
